FAERS Safety Report 14837116 (Version 1)
Quarter: 2018Q2

REPORT INFORMATION
  Report Type: Spontaneous
  Country: US (occurrence: US)
  Receive Date: 20180502
  Receipt Date: 20180502
  Transmission Date: 20180711
  Serious: No
  Sender: FDA-Public Use
  Company Number: US-JNJFOC-20180421113

PATIENT
  Age: 76 Year
  Sex: Female
  Weight: 43.55 kg

DRUGS (4)
  1. ZYRTEC [Suspect]
     Active Substance: CETIRIZINE HYDROCHLORIDE
     Indication: HYPERSENSITIVITY
     Dosage: HALF TABLET ON THE 4TH DAY
     Route: 065
  2. ZYRTEC [Suspect]
     Active Substance: CETIRIZINE HYDROCHLORIDE
     Indication: HYPERSENSITIVITY
     Dosage: STOPPED AFTER 4 DAYS
     Route: 065
  3. ZYRTEC [Suspect]
     Active Substance: CETIRIZINE HYDROCHLORIDE
     Indication: PRURITUS GENERALISED
     Dosage: HALF TABLET ON THE 4TH DAY
     Route: 065
  4. ZYRTEC [Suspect]
     Active Substance: CETIRIZINE HYDROCHLORIDE
     Indication: PRURITUS GENERALISED
     Dosage: STOPPED AFTER 4 DAYS
     Route: 065

REACTIONS (7)
  - Vomiting [Recovered/Resolved]
  - Drug administration error [Unknown]
  - Wrong technique in product usage process [Unknown]
  - Feeling abnormal [Recovered/Resolved]
  - Therapeutic response unexpected [Unknown]
  - Nausea [Recovered/Resolved]
  - Product use in unapproved indication [Unknown]
